FAERS Safety Report 9639494 (Version 1)
Quarter: 2013Q4

REPORT INFORMATION
  Report Type: Spontaneous
  Country: US (occurrence: US)
  Receive Date: 20131023
  Receipt Date: 20131023
  Transmission Date: 20140711
  Serious: Yes (Other)
  Sender: FDA-Public Use
  Company Number: US-AMGEN-USASP2013074281

PATIENT
  Age: 8 Week
  Sex: Female

DRUGS (1)
  1. EPOGEN [Suspect]
     Indication: ANAEMIA NEONATAL
     Dosage: 400 UNITS/KG, 3 TIMES/WK FOR 9 DOSES
     Route: 058

REACTIONS (2)
  - Extramedullary haemopoiesis [Recovered/Resolved]
  - Purpura neonatal [Recovered/Resolved]
